FAERS Safety Report 19670038 (Version 2)
Quarter: 2021Q3

REPORT INFORMATION
  Report Type: Report from Study
  Country: US (occurrence: US)
  Receive Date: 20210806
  Receipt Date: 20210902
  Transmission Date: 20211014
  Serious: Yes (Disabling, Other)
  Sender: FDA-Public Use
  Company Number: NVSC2021US169906

PATIENT
  Sex: Male

DRUGS (1)
  1. KESIMPTA [Suspect]
     Active Substance: OFATUMUMAB
     Indication: MULTIPLE SCLEROSIS
     Dosage: 20 MG (LOADING DOSE)
     Route: 065

REACTIONS (5)
  - Hypoaesthesia [Unknown]
  - Chills [Unknown]
  - Paralysis [Recovered/Resolved]
  - Gait inability [Unknown]
  - Pyrexia [Unknown]
